FAERS Safety Report 26100652 (Version 1)
Quarter: 2025Q4

REPORT INFORMATION
  Report Type: Other
  Country: TN (occurrence: TN)
  Receive Date: 20251128
  Receipt Date: 20251128
  Transmission Date: 20260117
  Serious: Yes (Hospitalization)
  Sender: BIONPHARMA INC.
  Company Number: TN-Bion-015322

PATIENT
  Age: 17 Year
  Sex: Male

DRUGS (1)
  1. IBUPROFEN [Suspect]
     Active Substance: IBUPROFEN
     Indication: Pain management

REACTIONS (1)
  - Nephropathy [Unknown]
